FAERS Safety Report 21034118 (Version 3)
Quarter: 2023Q2

REPORT INFORMATION
  Report Type: Report from Study
  Country: IT (occurrence: IT)
  Receive Date: 20220701
  Receipt Date: 20230502
  Transmission Date: 20230722
  Serious: Yes (Other)
  Sender: FDA-Public Use
  Company Number: IT-TAKEDA-2022TUS043682

PATIENT
  Age: 73 Year
  Sex: Female

DRUGS (16)
  1. TEDUGLUTIDE [Suspect]
     Active Substance: TEDUGLUTIDE
     Indication: Short-bowel syndrome
     Dosage: 3.4 MILLIGRAM, QD
     Route: 042
     Dates: start: 20201118, end: 20220405
  2. TEDUGLUTIDE [Suspect]
     Active Substance: TEDUGLUTIDE
     Indication: Short-bowel syndrome
     Dosage: 3.4 MILLIGRAM, QD
     Route: 042
     Dates: start: 20201118, end: 20220405
  3. TEDUGLUTIDE [Suspect]
     Active Substance: TEDUGLUTIDE
     Indication: Short-bowel syndrome
     Dosage: 3.4 MILLIGRAM, QD
     Route: 042
     Dates: start: 20201118, end: 20220405
  4. TEDUGLUTIDE [Suspect]
     Active Substance: TEDUGLUTIDE
     Indication: Short-bowel syndrome
     Dosage: 3.4 MILLIGRAM, QD
     Route: 042
     Dates: start: 20201118, end: 20220405
  5. ANTHRALIN [Concomitant]
     Active Substance: ANTHRALIN
     Indication: Anal fissure
     Dosage: UNK
     Route: 061
     Dates: start: 2021
  6. Covid-19 vaccine [Concomitant]
     Indication: COVID-19
     Dosage: UNK
     Route: 065
     Dates: start: 2021, end: 2021
  7. Motilex [Concomitant]
     Indication: Hiatus hernia
     Dosage: 0.50 MILLIGRAM, QD
     Route: 048
     Dates: start: 20210428
  8. Folina [Concomitant]
     Indication: Nutritional supplementation
     Dosage: 5 MILLIGRAM, QD
     Route: 048
     Dates: start: 202008, end: 2020
  9. PANTOPRAZOLE [Concomitant]
     Active Substance: PANTOPRAZOLE
     Indication: Supplementation therapy
     Dosage: 40 MILLIGRAM, QD
     Route: 048
  10. LOPERAMIDE [Concomitant]
     Active Substance: LOPERAMIDE
     Indication: Supplementation therapy
     Dosage: 2 MILLIGRAM
     Route: 048
  11. ENTEROLACTIS PLUS [Concomitant]
     Indication: Nutritional supplementation
     Dosage: UNK
     Route: 048
  12. VITAMIN D [Concomitant]
     Active Substance: VITAMIN D NOS
     Indication: Nutritional supplementation
     Dosage: UNK
     Route: 048
  13. METRONIDAZOLE [Concomitant]
     Active Substance: METRONIDAZOLE
     Indication: Supplementation therapy
     Dosage: 550 MILLIGRAM
     Route: 048
  14. SPASMOFEN [Concomitant]
     Active Substance: CODEINE HYDROCHLORIDE\METHSCOPOLAMINE NITRATE\MORPHINE HYDROCHLORIDE\ NOSCAPINE HYDROCHLORIDE\PAPAVE
     Indication: Abdominal pain
     Dosage: 1 DOSAGE FORM, BID
     Route: 048
     Dates: start: 20210924
  15. GLECAPREVIR\PIBRENTASVIR [Concomitant]
     Active Substance: GLECAPREVIR\PIBRENTASVIR
     Indication: Hepatitis C
     Dosage: 3 DOSAGE FORM, QD
     Route: 048
     Dates: start: 202201, end: 202202
  16. EDOXABAN TOSYLATE [Concomitant]
     Active Substance: EDOXABAN TOSYLATE
     Indication: Atrial fibrillation
     Dosage: 1 DOSAGE FORM, QD
     Route: 048
     Dates: start: 202202

REACTIONS (1)
  - Atrial fibrillation [Recovered/Resolved]

NARRATIVE: CASE EVENT DATE: 20220201
